FAERS Safety Report 23719337 (Version 1)
Quarter: 2024Q2

REPORT INFORMATION
  Report Type: Spontaneous
  Country: US (occurrence: US)
  Receive Date: 20240408
  Receipt Date: 20240408
  Transmission Date: 20240716
  Serious: No
  Sender: FDA-Public Use
  Company Number: US-BAYER-2024A044413

PATIENT
  Age: 54 Year
  Sex: Male

DRUGS (1)
  1. CLARITIN [Suspect]
     Active Substance: LORATADINE
     Dosage: UNK

REACTIONS (3)
  - Drug hypersensitivity [Unknown]
  - Oropharyngeal pain [Unknown]
  - Paranasal sinus hypersecretion [Unknown]
